FAERS Safety Report 15722588 (Version 1)
Quarter: 2018Q4

REPORT INFORMATION
  Report Type: Spontaneous
  Country: US (occurrence: US)
  Receive Date: 20181213
  Receipt Date: 20181213
  Transmission Date: 20190205
  Serious: Yes (Hospitalization, Other)
  Sender: FDA-Public Use
  Company Number: None

PATIENT
  Age: 24 Year
  Sex: Female

DRUGS (12)
  1. TOBI [Concomitant]
     Active Substance: TOBRAMYCIN
  2. MEPHYTON [Concomitant]
     Active Substance: PHYTONADIONE
  3. AQUADEKS [Concomitant]
     Active Substance: MINERALS\VITAMINS
  4. CREON [Concomitant]
     Active Substance: PANCRELIPASE AMYLASE\PANCRELIPASE LIPASE\PANCRELIPASE PROTEASE
  5. CAYSTON [Concomitant]
     Active Substance: AZTREONAM
  6. ORKAMBI [Concomitant]
     Active Substance: IVACAFTOR\LUMACAFTOR
  7. VITAMIN D3 [Concomitant]
     Active Substance: CHOLECALCIFEROL
  8. SODIUM CHLORIDE. [Concomitant]
     Active Substance: SODIUM CHLORIDE
  9. ORKAMBI [Suspect]
     Active Substance: IVACAFTOR\LUMACAFTOR
     Indication: BRONCHIECTASIS
     Route: 048
  10. SODIUM CHL 7% NEBULIZER SOL [Suspect]
     Active Substance: SODIUM CHLORIDE
     Indication: BRONCHIECTASIS
     Dosage: ?          OTHER FREQUENCY:(2) TIMES DAILY;OTHER ROUTE:NEBULIZER?
  11. AZITHROMHYCIN [Concomitant]
  12. PULMOZYME [Concomitant]
     Active Substance: DORNASE ALFA

REACTIONS (2)
  - Condition aggravated [None]
  - Lung disorder [None]

NARRATIVE: CASE EVENT DATE: 20181211
